FAERS Safety Report 22382564 (Version 1)
Quarter: 2023Q2

REPORT INFORMATION
  Report Type: Spontaneous
  Country: US (occurrence: US)
  Receive Date: 20230530
  Receipt Date: 20230530
  Transmission Date: 20230722
  Serious: Yes (Death, Hospitalization, Other)
  Sender: FDA-Public Use
  Company Number: US-MACLEODS PHARMACEUTICALS US LTD-MAC2023041540

PATIENT

DRUGS (2)
  1. SEVELAMER [Suspect]
     Active Substance: SEVELAMER
     Indication: End stage renal disease
     Dosage: 2400 MILLIGRAM, TID
     Route: 048
  2. SEVELAMER [Suspect]
     Active Substance: SEVELAMER
     Indication: Diabetic gastroparesis

REACTIONS (3)
  - Death [Fatal]
  - Haematochezia [Recovered/Resolved]
  - Rectal ulcer [Recovered/Resolved]
